FAERS Safety Report 8285627 (Version 3)
Quarter: 2013Q1

REPORT INFORMATION
  Report Type: Spontaneous
  Country: FR (occurrence: FR)
  Receive Date: 20111213
  Receipt Date: 20130315
  Transmission Date: 20140127
  Serious: Yes (Hospitalization, Other)
  Sender: FDA-Public Use
  Company Number: FR-PFIZER INC-2011299330

PATIENT
  Age: 59 Year
  Sex: Male

DRUGS (6)
  1. LYRICA [Suspect]
     Dosage: 75 MG/DAY
     Route: 048
     Dates: start: 20110915, end: 20111021
  2. VANCOMYCIN HCL [Suspect]
     Dosage: 3 G/DAY
     Dates: start: 20110915, end: 20111021
  3. FOSFOMYCIN [Suspect]
     Dosage: 4 G/DAY
     Dates: start: 20110915, end: 20111021
  4. ALLOPURINOL [Suspect]
     Dosage: 200 MG/DAY
     Dates: start: 20110915, end: 20111021
  5. INEXIUM [Suspect]
     Dosage: 40 MG/DAY
     Route: 048
     Dates: start: 20110915, end: 20111021
  6. DIFFU K [Suspect]
     Dosage: UNK
     Route: 048
     Dates: start: 20110915, end: 20111021

REACTIONS (2)
  - Rash maculo-papular [Recovered/Resolved]
  - Neutropenia [Recovered/Resolved]
